FAERS Safety Report 15075494 (Version 1)
Quarter: 2018Q2

REPORT INFORMATION
  Report Type: Report from Study
  Country: US (occurrence: US)
  Receive Date: 20180627
  Receipt Date: 20180627
  Transmission Date: 20180711
  Serious: Yes (Other)
  Sender: FDA-Public Use
  Company Number: US-SAOL THERAPEUTICS-2017SAO01680

PATIENT
  Age: 48 Year
  Sex: Female

DRUGS (24)
  1. COMPOUNDED BACLOFEN [Suspect]
     Active Substance: BACLOFEN
     Dosage: 123.94, ?G \DAY MAX
     Route: 037
     Dates: start: 20151015, end: 20160901
  2. BUPIVACAINE. [Suspect]
     Active Substance: BUPIVACAINE
     Dosage: 21.839 MG, \DAY MAX
     Route: 037
     Dates: start: 20161012
  3. BUPIVACAINE. [Suspect]
     Active Substance: BUPIVACAINE
     Dosage: 17.931 MG, \DAY MAX
     Route: 037
     Dates: start: 20161012
  4. DILAUDID [Suspect]
     Active Substance: HYDROMORPHONE HYDROCHLORIDE
     Dosage: 1.289 MG, \DAY MAX
     Route: 037
     Dates: start: 20160901, end: 20161012
  5. DILAUDID [Suspect]
     Active Substance: HYDROMORPHONE HYDROCHLORIDE
     Dosage: 0.8966 MG, \DAY MAX
     Route: 037
     Dates: start: 20161012
  6. COMPOUNDED BACLOFEN [Suspect]
     Active Substance: BACLOFEN
     Dosage: 118.49, ?G \DAY MAX
     Route: 037
     Dates: end: 20160901
  7. COMPOUNDED BACLOFEN [Suspect]
     Active Substance: BACLOFEN
     Dosage: 90.12, ?G \DAY
     Route: 037
     Dates: start: 20160901, end: 20161012
  8. DILAUDID [Suspect]
     Active Substance: HYDROMORPHONE HYDROCHLORIDE
     Dosage: 1.184 MG, \DAY MAX
     Route: 037
     Dates: end: 20160901
  9. COMPOUNDED BACLOFEN [Suspect]
     Active Substance: BACLOFEN
     Dosage: 89.66 ?G \DAY MAX
     Route: 037
     Dates: start: 20161012
  10. BUPIVACAINE. [Suspect]
     Active Substance: BUPIVACAINE
     Dosage: 24.788 MG, \DAY MAX
     Route: 037
     Dates: start: 20151015, end: 20160901
  11. DILAUDID [Suspect]
     Active Substance: HYDROMORPHONE HYDROCHLORIDE
     Dosage: 1.239 MG, \DAY MAX
     Route: 037
     Dates: start: 20151015
  12. BUPIVACAINE. [Suspect]
     Active Substance: BUPIVACAINE
     Dosage: 16.021 MG, \DAY
     Route: 037
     Dates: start: 20151015, end: 20160901
  13. BUPIVACAINE. [Suspect]
     Active Substance: BUPIVACAINE
     Dosage: 14.023 MG, \DAY
     Route: 037
     Dates: start: 20161012
  14. DILAUDID [Suspect]
     Active Substance: HYDROMORPHONE HYDROCHLORIDE
     Dosage: 0.901 MG, \DAY
     Route: 037
     Dates: start: 20160901, end: 20161012
  15. COMPOUNDED BACLOFEN [Suspect]
     Active Substance: BACLOFEN
     Dosage: 80.10, ?G \DAY
     Route: 037
     Dates: start: 20151015, end: 20160901
  16. COMPOUNDED BACLOFEN [Suspect]
     Active Substance: BACLOFEN
     Dosage: 128.92, ?G \DAY MAX
     Route: 037
     Dates: start: 20160901, end: 20161012
  17. COMPOUNDED BACLOFEN [Suspect]
     Active Substance: BACLOFEN
     Dosage: 70.12, ?G \DAY
     Route: 037
     Dates: start: 20161012
  18. DILAUDID [Suspect]
     Active Substance: HYDROMORPHONE HYDROCHLORIDE
     Dosage: 0.801 MG, \DAY
     Route: 037
     Dates: start: 20151015, end: 20160901
  19. BUPIVACAINE. [Suspect]
     Active Substance: BUPIVACAINE
     Dosage: 25.784 MG, \DAY MAX
     Route: 037
     Dates: start: 20160901, end: 20161012
  20. DILAUDID [Suspect]
     Active Substance: HYDROMORPHONE HYDROCHLORIDE
     Dosage: 0.701 MG, \DAY
     Route: 037
     Dates: start: 20161012
  21. DILAUDID [Suspect]
     Active Substance: HYDROMORPHONE HYDROCHLORIDE
     Dosage: 1.091 MG, \DAY MAX
     Route: 037
     Dates: start: 20161012
  22. COMPOUNDED BACLOFEN [Suspect]
     Active Substance: BACLOFEN
     Dosage: 109.19, ?G \DAY MAX
     Route: 037
     Dates: start: 20161012
  23. BUPIVACAINE. [Suspect]
     Active Substance: BUPIVACAINE
     Dosage: 18.023 MG, \DAY
     Route: 037
     Dates: start: 20160901, end: 20161012
  24. BUPIVACAINE. [Suspect]
     Active Substance: BUPIVACAINE
     Dosage: 23.698 MG, \DAY MAX
     Route: 037
     Dates: end: 20160901

REACTIONS (5)
  - Muscular weakness [Recovered/Resolved]
  - Catheter site pain [Recovered/Resolved]
  - Fall [Recovered/Resolved]
  - Device failure [Unknown]
  - Drug ineffective for unapproved indication [Recovered/Resolved]

NARRATIVE: CASE EVENT DATE: 20151015
